FAERS Safety Report 18132167 (Version 2)
Quarter: 2020Q3

REPORT INFORMATION
  Report Type: Report from Study
  Country: US (occurrence: US)
  Receive Date: 20200811
  Receipt Date: 20200817
  Transmission Date: 20201103
  Serious: Yes (Other)
  Sender: FDA-Public Use
  Company Number: US-HORIZON-KRY-1082-2020

PATIENT
  Age: 42 Year
  Sex: Male

DRUGS (1)
  1. KRYSTEXXA [Suspect]
     Active Substance: PEGLOTICASE
     Indication: PRODUCT USED FOR UNKNOWN INDICATION
     Route: 042

REACTIONS (9)
  - Erythema [Unknown]
  - Swelling face [Unknown]
  - Abdominal discomfort [Not Recovered/Not Resolved]
  - Eye pruritus [Unknown]
  - Dyspnoea [Unknown]
  - Ear pruritus [Unknown]
  - Vision blurred [Not Recovered/Not Resolved]
  - Pharyngeal swelling [Unknown]
  - Gait disturbance [Unknown]
